FAERS Safety Report 4700273-1 (Version None)
Quarter: 2005Q2

REPORT INFORMATION
  Report Type: 
  Country: None (occurrence: None)
  Receive Date: 20050627
  Receipt Date: 20050622
  Transmission Date: 20051028
  Serious: Yes (Hospitalization)
  Sender: FDA-Public Use
  Company Number: PHBS2005US08999

PATIENT
  Age: 13 Year
  Sex: Male

DRUGS (5)
  1. METHYLPHENIDATE HCL [Suspect]
     Indication: ATTENTION DEFICIT/HYPERACTIVITY DISORDER
     Dosage: 36 MG/D
     Route: 065
  2. METHYLPHENIDATE HCL [Suspect]
     Dosage: 54 MG/D
     Route: 065
  3. FLUVOXAMINE [Concomitant]
     Dosage: 150 MG, BID
  4. GUANFACINE HCL [Concomitant]
     Dosage: 1 MG, BID
  5. RISPERIDONE [Concomitant]
     Dosage: 0.5 MG, TID

REACTIONS (5)
  - AGGRESSION [None]
  - EXTRAPYRAMIDAL DISORDER [None]
  - MUSCULOSKELETAL STIFFNESS [None]
  - SUICIDE ATTEMPT [None]
  - TIC [None]
